FAERS Safety Report 10235838 (Version 1)
Quarter: 2014Q1

REPORT INFORMATION
  Report Type: Spontaneous
  Country: US (occurrence: None)
  Receive Date: 20140306
  Receipt Date: 20140306
  Transmission Date: 20141002
  Serious: Yes (Other)
  Sender: FDA-Public Use
  Company Number: 163-21880-13044121

PATIENT
  Age: 68 Year
  Sex: Male

DRUGS (10)
  1. REVLIMID (LENALIDOMIDE) (CAPSULES) [Suspect]
     Indication: PLASMA CELL MYELOMA
     Dosage: 25 MG, 21 IN 21 D, PO?23-NOV-2012-PERM. DISCONTINUED
     Route: 048
     Dates: start: 20121123
  2. AMOXICILLIN (AMOXICILLIN) (UNKNOWN) [Concomitant]
  3. IBUPROFEN (IBUPROFEN) (UNKNOWN) [Concomitant]
  4. BABY ASPIRIN (ACETYLSALICYLIC ACID) (UNKNOWN) [Concomitant]
  5. CALCIUM 600 (UNKNOWN) [Concomitant]
  6. DEXAMETHASONE (DEXAMETHASONE) (UNKNOWN) [Concomitant]
  7. FOLIC ACID (FOLIC ACID) (UNKNOWN) [Concomitant]
  8. MULTIVITAMINS (MULTIVITAMINS) (UNKNOWN) [Concomitant]
  9. OMEGA 3 (FISH OIL) (UNKNOWN) [Concomitant]
  10. VITAMIN D (ERGOCALCIFEROL) [Concomitant]

REACTIONS (2)
  - Full blood count decreased [None]
  - Platelet count abnormal [None]
